FAERS Safety Report 8659736 (Version 3)
Quarter: 2013Q1

REPORT INFORMATION
  Report Type: Spontaneous
  Country: US (occurrence: None)
  Receive Date: 20120621
  Receipt Date: 20130110
  Transmission Date: 20140127
  Serious: Yes (Hospitalization, Other)
  Sender: FDA-Public Use
  Company Number: 2012PROUSA01514

PATIENT
  Age: 70 Year
  Sex: Male
  Weight: 75.4 kg

DRUGS (3)
  1. PROVENGE [Suspect]
     Indication: PROSTATE CANCER METASTATIC
     Dosage: 250 ML, SINGLE, INTRAVENOUS;
     Route: 042
     Dates: start: 20120526, end: 20120526
  2. LEUPROLIDE (LEUPROLIDE) [Concomitant]
  3. ABIRATERONE ACETATE W/PREDNISOLONE (ABIRATERONE ACETATE  W/PREDNISOLONE) [Concomitant]

REACTIONS (9)
  - Mental status changes [None]
  - Adrenal insufficiency [None]
  - Malignant neoplasm progression [None]
  - Prostate cancer [None]
  - Malaise [None]
  - Decreased appetite [None]
  - Weight decreased [None]
  - Anaemia [None]
  - Arthralgia [None]
